FAERS Safety Report 9249920 (Version 1)
Quarter: 2013Q2

REPORT INFORMATION
  Report Type: Spontaneous
  Country: US (occurrence: US)
  Receive Date: 20130423
  Receipt Date: 20130423
  Transmission Date: 20140414
  Serious: No
  Sender: FDA-Public Use
  Company Number: US-009507513-1304USA013357

PATIENT
  Age: 2 Year
  Sex: Male
  Weight: 13.61 kg

DRUGS (2)
  1. CLARITIN ORAL SOLUTION [Suspect]
     Indication: SEASONAL ALLERGY
     Dosage: 5 MG, QD
     Route: 048
     Dates: start: 201303
  2. CLARITIN ORAL SOLUTION [Suspect]
     Dosage: 15 MG, ONCE
     Route: 048
     Dates: start: 20130330

REACTIONS (2)
  - Accidental overdose [Unknown]
  - No adverse event [Unknown]
